FAERS Safety Report 6273277-8 (Version None)
Quarter: 2009Q3

REPORT INFORMATION
  Report Type: 
  Country: None (occurrence: None)
  Receive Date: 20090720
  Receipt Date: 20090706
  Transmission Date: 20100115
  Serious: Yes (Other)
  Sender: FDA-Public Use
  Company Number: AT-ROCHE-435704

PATIENT
  Sex: Male
  Weight: 80 kg

DRUGS (1)
  1. PEG-INTERFERON ALFA 2A (RO 25-8310) [Suspect]
     Route: 058
     Dates: start: 20060204, end: 20060207

REACTIONS (1)
  - LOSS OF CONSCIOUSNESS [None]
